FAERS Safety Report 6228434-3 (Version None)
Quarter: 2009Q2

REPORT INFORMATION
  Report Type: 
  Country: None (occurrence: None)
  Receive Date: 20090612
  Receipt Date: 20090603
  Transmission Date: 20091009
  Serious: Yes (Life-Threatening, Hospitalization, Other)
  Sender: FDA-Public Use
  Company Number: DE-ELI_LILLY_AND_COMPANY-DE200906001024

PATIENT
  Sex: Male

DRUGS (2)
  1. CIALIS [Suspect]
     Indication: ERECTILE DYSFUNCTION
     Dosage: 20 MG, UNKNOWN
     Route: 048
     Dates: start: 20080601
  2. VENLAFAXINE HCL [Concomitant]
     Dosage: 150 MG, UNKNOWN
     Route: 065
     Dates: start: 20080601

REACTIONS (2)
  - COMA [None]
  - MYOCARDIAL INFARCTION [None]
